FAERS Safety Report 5318040-7 (Version None)
Quarter: 2007Q2

REPORT INFORMATION
  Report Type: 
  Country: None (occurrence: None)
  Receive Date: 20070504
  Receipt Date: 20070504
  Transmission Date: 20071010
  Serious: Yes (Hospitalization)
  Sender: FDA-Public Use
  Company Number: None

PATIENT
  Age: 29 Year
  Sex: Male
  Weight: 113.8529 kg

DRUGS (7)
  1. HGH SPRAY UNDER THE TONGUE [Suspect]
  2. VITASPOD (VIT SUPPL) [Suspect]
  3. VITAMIN B-12 [Suspect]
  4. PROTEIN SHAKES [Suspect]
  5. ZIPRASIDONE [Suspect]
  6. AMINO ACIDS [Concomitant]
  7. CREATINE [Suspect]

REACTIONS (3)
  - BLOOD CREATINE PHOSPHOKINASE INCREASED [None]
  - CHEST PAIN [None]
  - LIVER FUNCTION TEST ABNORMAL [None]
